FAERS Safety Report 18009987 (Version 2)
Quarter: 2020Q3

REPORT INFORMATION
  Report Type: Spontaneous
  Country: CA (occurrence: CA)
  Receive Date: 20200710
  Receipt Date: 20200818
  Transmission Date: 20201103
  Serious: Yes (Other)
  Sender: FDA-Public Use
  Company Number: CA-AMERICAN REGENT INC-2020001373

PATIENT
  Age: 76 Year
  Sex: Female
  Weight: 113.38 kg

DRUGS (2)
  1. VENOFER [Suspect]
     Active Substance: IRON SUCROSE
     Dosage: 100 MG, BIMONTHLY DOSE: SECOND DOSE
     Route: 042
     Dates: start: 20200323, end: 20200323
  2. VENOFER [Suspect]
     Active Substance: IRON SUCROSE
     Indication: BLOOD IRON DECREASED
     Dosage: 100 MG, BIMONTHLY DOSE: FIRST DOSE
     Route: 065
     Dates: start: 2020, end: 2020

REACTIONS (3)
  - Heart rate abnormal [Recovered/Resolved]
  - Dizziness [Recovered/Resolved]
  - Chest discomfort [Recovered/Resolved]

NARRATIVE: CASE EVENT DATE: 20200323
